FAERS Safety Report 13930109 (Version 1)
Quarter: 2017Q3

REPORT INFORMATION
  Report Type: Spontaneous
  Country: US (occurrence: US)
  Receive Date: 20170901
  Receipt Date: 20170901
  Transmission Date: 20171127
  Serious: Yes (Other)
  Sender: FDA-Public Use
  Company Number: US-PFIZER INC-2017374607

PATIENT
  Sex: Female

DRUGS (1)
  1. LYRICA [Suspect]
     Active Substance: PREGABALIN
     Dosage: 75 MG, 3X/DAY

REACTIONS (7)
  - Compression fracture [Unknown]
  - Intervertebral disc protrusion [Unknown]
  - Ligament sprain [Unknown]
  - Arthropathy [Unknown]
  - Fall [Unknown]
  - Gait disturbance [Unknown]
  - Pain [Unknown]
